FAERS Safety Report 7948279-3 (Version None)
Quarter: 2011Q4

REPORT INFORMATION
  Report Type: 
  Country: None (occurrence: None)
  Receive Date: 20111130
  Receipt Date: 20111123
  Transmission Date: 20120403
  Serious: No
  Sender: FDA-Public Use
  Company Number: US-PFIZER INC-2011152813

PATIENT
  Sex: Male

DRUGS (3)
  1. LIPITOR [Suspect]
     Indication: BLOOD CHOLESTEROL INCREASED
     Dosage: 20 MG, 1X/DAY
     Route: 048
     Dates: start: 20110301, end: 20110901
  2. CRESTOR [Suspect]
     Indication: BLOOD CHOLESTEROL INCREASED
     Dosage: 5 MG, 1X/DAY
     Route: 048
     Dates: start: 20110901
  3. LUMIGAN [Concomitant]
     Dosage: UNK

REACTIONS (4)
  - DRY MOUTH [None]
  - PAIN [None]
  - BLOOD CHOLESTEROL INCREASED [None]
  - DYSPNOEA [None]
